FAERS Safety Report 8149149 (Version 4)
Quarter: 2013Q4

REPORT INFORMATION
  Report Type: Spontaneous
  Country: US (occurrence: US)
  Receive Date: 20110922
  Receipt Date: 20131210
  Transmission Date: 20140711
  Serious: Yes (Other)
  Sender: FDA-Public Use
  Company Number: US-ASTRAZENECA-2011SE17150

PATIENT
  Age: 63 Year
  Sex: Male
  Weight: 81.6 kg

DRUGS (46)
  1. SEROQUEL [Suspect]
     Indication: BIPOLAR DISORDER
     Route: 048
     Dates: start: 2007
  2. SEROQUEL [Suspect]
     Indication: ANXIETY
     Route: 048
     Dates: start: 2007
  3. SEROQUEL [Suspect]
     Indication: POST-TRAUMATIC STRESS DISORDER
     Route: 048
     Dates: start: 2007
  4. SEROQUEL [Suspect]
     Indication: MAJOR DEPRESSION
     Route: 048
     Dates: start: 2007
  5. SEROQUEL [Suspect]
     Indication: BIPOLAR DISORDER
     Route: 048
  6. SEROQUEL [Suspect]
     Indication: ANXIETY
     Route: 048
  7. SEROQUEL [Suspect]
     Indication: POST-TRAUMATIC STRESS DISORDER
     Route: 048
  8. SEROQUEL [Suspect]
     Indication: MAJOR DEPRESSION
     Route: 048
  9. SEROQUEL [Suspect]
     Indication: BIPOLAR DISORDER
     Route: 048
  10. SEROQUEL [Suspect]
     Indication: ANXIETY
     Route: 048
  11. SEROQUEL [Suspect]
     Indication: POST-TRAUMATIC STRESS DISORDER
     Route: 048
  12. SEROQUEL [Suspect]
     Indication: MAJOR DEPRESSION
     Route: 048
  13. SEROQUEL [Suspect]
     Indication: BIPOLAR DISORDER
     Route: 048
  14. SEROQUEL [Suspect]
     Indication: ANXIETY
     Route: 048
  15. SEROQUEL [Suspect]
     Indication: POST-TRAUMATIC STRESS DISORDER
     Route: 048
  16. SEROQUEL [Suspect]
     Indication: MAJOR DEPRESSION
     Route: 048
  17. SEROQUEL [Suspect]
     Indication: BIPOLAR DISORDER
     Route: 048
  18. SEROQUEL [Suspect]
     Indication: ANXIETY
     Route: 048
  19. SEROQUEL [Suspect]
     Indication: POST-TRAUMATIC STRESS DISORDER
     Route: 048
  20. SEROQUEL [Suspect]
     Indication: MAJOR DEPRESSION
     Route: 048
  21. SEROQUEL [Suspect]
     Indication: BIPOLAR DISORDER
     Dosage: 50-100MG
     Route: 048
  22. SEROQUEL [Suspect]
     Indication: ANXIETY
     Dosage: 50-100MG
     Route: 048
  23. SEROQUEL [Suspect]
     Indication: POST-TRAUMATIC STRESS DISORDER
     Dosage: 50-100MG
     Route: 048
  24. SEROQUEL [Suspect]
     Indication: MAJOR DEPRESSION
     Dosage: 50-100MG
     Route: 048
  25. SEROQUEL [Suspect]
     Indication: BIPOLAR DISORDER
     Dosage: 50 MG, 100 MG, 200 MG, 400 MG
     Route: 048
  26. SEROQUEL [Suspect]
     Indication: ANXIETY
     Dosage: 50 MG, 100 MG, 200 MG, 400 MG
     Route: 048
  27. SEROQUEL [Suspect]
     Indication: POST-TRAUMATIC STRESS DISORDER
     Dosage: 50 MG, 100 MG, 200 MG, 400 MG
     Route: 048
  28. SEROQUEL [Suspect]
     Indication: MAJOR DEPRESSION
     Dosage: 50 MG, 100 MG, 200 MG, 400 MG
     Route: 048
  29. SEROQUEL [Suspect]
     Indication: BIPOLAR DISORDER
     Dosage: BREAKING IT IN HALF
     Route: 048
  30. SEROQUEL [Suspect]
     Indication: ANXIETY
     Dosage: BREAKING IT IN HALF
     Route: 048
  31. SEROQUEL [Suspect]
     Indication: POST-TRAUMATIC STRESS DISORDER
     Dosage: BREAKING IT IN HALF
     Route: 048
  32. SEROQUEL [Suspect]
     Indication: MAJOR DEPRESSION
     Dosage: BREAKING IT IN HALF
     Route: 048
  33. SEROQUEL [Suspect]
     Indication: BIPOLAR DISORDER
     Route: 048
  34. SEROQUEL [Suspect]
     Indication: ANXIETY
     Route: 048
  35. SEROQUEL [Suspect]
     Indication: POST-TRAUMATIC STRESS DISORDER
     Route: 048
  36. SEROQUEL [Suspect]
     Indication: MAJOR DEPRESSION
     Route: 048
  37. KLONOPIN [Concomitant]
     Indication: ANXIETY
  38. KLONOPIN [Concomitant]
     Indication: PANIC ATTACK
  39. ZOLOFT [Concomitant]
  40. RESTORIL [Concomitant]
  41. ADDERALL [Concomitant]
  42. LUNESTA [Concomitant]
  43. ZANAFLEX [Concomitant]
     Indication: SLEEP DISORDER
     Route: 048
  44. ZANAFLEX [Concomitant]
     Indication: BACK DISORDER
     Route: 048
  45. ZANAFLEX [Concomitant]
     Indication: SLEEP DISORDER
     Route: 048
  46. ZANAFLEX [Concomitant]
     Indication: BACK DISORDER
     Route: 048

REACTIONS (19)
  - Liver disorder [Unknown]
  - Hepatitis C [Unknown]
  - Nervousness [Recovered/Resolved]
  - Major depression [Recovered/Resolved]
  - Adverse event [Recovered/Resolved]
  - Anger [Unknown]
  - Depressed mood [Unknown]
  - Insomnia [Unknown]
  - Eating disorder [Not Recovered/Not Resolved]
  - Weight decreased [Unknown]
  - Malaise [Unknown]
  - Social avoidant behaviour [Not Recovered/Not Resolved]
  - Personality change [Not Recovered/Not Resolved]
  - Irritability [Not Recovered/Not Resolved]
  - Off label use [Unknown]
  - Drug dose omission [Not Recovered/Not Resolved]
  - Intentional drug misuse [Unknown]
  - Intentional drug misuse [Unknown]
  - Drug ineffective [Unknown]
